FAERS Safety Report 6252375-9 (Version None)
Quarter: 2009Q3

REPORT INFORMATION
  Report Type: 
  Country: None (occurrence: None)
  Receive Date: 20090701
  Receipt Date: 20090701
  Transmission Date: 20100115
  Serious: Yes (Death)
  Sender: FDA-Public Use
  Company Number: US-PFIZER INC-2009217597

PATIENT
  Age: 37 Year
  Sex: Male

DRUGS (1)
  1. ARTHROTEC [Suspect]

REACTIONS (1)
  - DEATH [None]
